FAERS Safety Report 17554409 (Version 2)
Quarter: 2020Q1

REPORT INFORMATION
  Report Type: Spontaneous
  Country: RU (occurrence: RU)
  Receive Date: 20200318
  Receipt Date: 20200323
  Transmission Date: 20200409
  Serious: Yes (Other)
  Sender: FDA-Public Use
  Company Number: RU-SUN PHARMACEUTICAL INDUSTRIES LTD-2020R1-240580

PATIENT
  Age: 30 Year
  Sex: Male

DRUGS (1)
  1. SOTRET [Suspect]
     Active Substance: ISOTRETINOIN
     Indication: ACNE
     Dosage: 20 MILLIGRAM, DAILY
     Route: 048
     Dates: start: 20191005, end: 20191029

REACTIONS (4)
  - Corneal opacity [Not Recovered/Not Resolved]
  - Myopia [Not Recovered/Not Resolved]
  - Visual acuity reduced [Not Recovered/Not Resolved]
  - Conjunctival disorder [Not Recovered/Not Resolved]

NARRATIVE: CASE EVENT DATE: 20191029
